FAERS Safety Report 8136689-3 (Version None)
Quarter: 2012Q1

REPORT INFORMATION
  Report Type: 
  Country: None (occurrence: None)
  Receive Date: 20120214
  Receipt Date: 20120208
  Transmission Date: 20120608
  Serious: Yes (Other)
  Sender: FDA-Public Use
  Company Number: US-ABBOTT-11P-163-0714781-00

PATIENT
  Sex: Male
  Weight: 101.7 kg

DRUGS (6)
  1. LOVAZA [Concomitant]
     Indication: PRODUCT USED FOR UNKNOWN INDICATION
  2. NIASPAN [Suspect]
     Indication: HIGH DENSITY LIPOPROTEIN DECREASED
     Route: 048
     Dates: start: 20110315, end: 20110315
  3. FENOFIBRATE [Concomitant]
     Indication: PRODUCT USED FOR UNKNOWN INDICATION
  4. LOVAZA [Concomitant]
     Indication: PRODUCT USED FOR UNKNOWN INDICATION
  5. CRESTOR [Concomitant]
     Indication: BLOOD CHOLESTEROL INCREASED
  6. VITAMIN D [Concomitant]
     Indication: PRODUCT USED FOR UNKNOWN INDICATION

REACTIONS (13)
  - ERYTHEMA [None]
  - DIZZINESS [None]
  - ASTHENIA [None]
  - PHARYNGEAL OEDEMA [None]
  - MOBILITY DECREASED [None]
  - PRURITUS [None]
  - HYPERHIDROSIS [None]
  - ADVERSE DRUG REACTION [None]
  - RASH ERYTHEMATOUS [None]
  - SYNCOPE [None]
  - LOSS OF CONSCIOUSNESS [None]
  - FLUSHING [None]
  - SPEECH DISORDER [None]
